FAERS Safety Report 21936169 (Version 1)
Quarter: 2023Q1

REPORT INFORMATION
  Report Type: Spontaneous
  Country: US (occurrence: US)
  Receive Date: 20230201
  Receipt Date: 20230201
  Transmission Date: 20230417
  Serious: No
  Sender: FDA-Public Use
  Company Number: US-SA-SAC20230130001763

PATIENT
  Age: 71 Year
  Sex: Female

DRUGS (1)
  1. DUPIXENT [Suspect]
     Active Substance: DUPILUMAB
     Indication: Chronic rhinosinusitis with nasal polyps
     Dosage: 300MG;FREQUENCY: OTHER
     Route: 058
     Dates: start: 202210

REACTIONS (4)
  - Injection site rash [Unknown]
  - Injection site pain [Unknown]
  - Dry eye [Not Recovered/Not Resolved]
  - Inappropriate schedule of product administration [Unknown]
